FAERS Safety Report 4886484-3 (Version None)
Quarter: 2006Q1

REPORT INFORMATION
  Report Type: 
  Country: None (occurrence: None)
  Receive Date: 20060118
  Receipt Date: 20060105
  Transmission Date: 20060701
  Serious: Yes (Hospitalization, Other)
  Sender: FDA-Public Use
  Company Number: US_0503114464

PATIENT
  Age: 24 Year
  Sex: Female
  Weight: 79.5 kg

DRUGS (19)
  1. ZYPREXA [Suspect]
     Indication: BIPOLAR DISORDER
     Dosage: 20 MG, DAILY (1/D), ORAL
     Route: 048
     Dates: start: 20001208, end: 20030601
  2. NORTRIPTYLINE HCL [Concomitant]
  3. EFFEXOR-XR (VENALAFAXINE HYDROCHLORIDE) [Concomitant]
  4. BUTALBITAL [Concomitant]
  5. NAPROXEN SODIUM [Concomitant]
  6. CIPRO [Concomitant]
  7. DEPAKOTE [Concomitant]
  8. REMERON [Concomitant]
  9. BIAXIN XL [Concomitant]
  10. AVELOX [Concomitant]
  11. METHYLPREDNISOLONE [Concomitant]
  12. PROPOXYPHENE HCL [Concomitant]
  13. ACETAMINOPHEN [Concomitant]
  14. VIOXX [Concomitant]
  15. ACCUPRIL [Concomitant]
  16. SKELAXIN [Concomitant]
  17. TOPAMAX [Concomitant]
  18. AMBIEN [Concomitant]
  19. VELAFAXINE (VENLAFAXINE) [Concomitant]

REACTIONS (13)
  - BLOOD CHOLESTEROL ABNORMAL [None]
  - BLOOD TRIGLYCERIDES INCREASED [None]
  - CRANIOPHARYNGIOMA [None]
  - DIABETES MELLITUS NON-INSULIN-DEPENDENT [None]
  - DIARRHOEA [None]
  - HYPERGLYCAEMIA [None]
  - HYPOGLYCAEMIA [None]
  - NAUSEA [None]
  - SUICIDE ATTEMPT [None]
  - TREATMENT NONCOMPLIANCE [None]
  - VISION BLURRED [None]
  - VOMITING [None]
  - WEIGHT INCREASED [None]
